FAERS Safety Report 23883884 (Version 1)
Quarter: 2024Q2

REPORT INFORMATION
  Report Type: Spontaneous
  Country: CH (occurrence: CH)
  Receive Date: 20240522
  Receipt Date: 20240522
  Transmission Date: 20240716
  Serious: Yes (Hospitalization)
  Sender: FDA-Public Use
  Company Number: CH-SM-2024-12674

PATIENT
  Age: 53 Year
  Sex: Female

DRUGS (1)
  1. METFORMIN [Suspect]
     Active Substance: METFORMIN HYDROCHLORIDE
     Indication: Diabetes mellitus
     Dosage: METFORMIN-MEPHA
     Route: 048
     Dates: start: 202401, end: 20240329

REACTIONS (4)
  - Lactic acidosis [Recovering/Resolving]
  - Vomiting [Unknown]
  - Toxicity to various agents [Recovering/Resolving]
  - Diarrhoea [Unknown]

NARRATIVE: CASE EVENT DATE: 20240328
